FAERS Safety Report 9919291 (Version 1)
Quarter: 2014Q1

REPORT INFORMATION
  Report Type: Report from Study
  Country: DE (occurrence: DE)
  Receive Date: 20140224
  Receipt Date: 20140224
  Transmission Date: 20141002
  Serious: Yes (Hospitalization)
  Sender: FDA-Public Use
  Company Number: DE-ROCHE-1352387

PATIENT
  Age: 60 Year
  Sex: Male

DRUGS (4)
  1. TOCILIZUMAB [Suspect]
     Indication: RHEUMATOID ARTHRITIS
     Route: 065
     Dates: start: 201109
  2. TOCILIZUMAB [Suspect]
     Route: 065
     Dates: start: 201209
  3. TOCILIZUMAB [Suspect]
     Route: 065
     Dates: start: 201302
  4. TOCILIZUMAB [Suspect]
     Route: 065
     Dates: start: 201309

REACTIONS (1)
  - Hip arthroplasty [Unknown]
